FAERS Safety Report 16444707 (Version 1)
Quarter: 2019Q2

REPORT INFORMATION
  Report Type: Spontaneous
  Country: JP (occurrence: JP)
  Receive Date: 20190618
  Receipt Date: 20190618
  Transmission Date: 20190711
  Serious: Yes (Hospitalization)
  Sender: FDA-Public Use
  Company Number: PHHY2018JP093779

PATIENT
  Age: 25 Year
  Sex: Male

DRUGS (11)
  1. POTASSIUM IODIDE. [Concomitant]
     Active Substance: POTASSIUM IODIDE
     Indication: MITOCHONDRIAL ENCEPHALOMYOPATHY
     Dosage: 0.5 MG, QD
     Route: 048
  2. UBIDECARENONE [Concomitant]
     Active Substance: UBIDECARENONE
     Indication: THYROID DISORDER
     Route: 048
  3. L CARTIN [Concomitant]
     Active Substance: LEVOCARNITINE HYDROCHLORIDE
     Indication: PNEUMONIA ASPIRATION
     Route: 048
  4. RECLAST [Suspect]
     Active Substance: ZOLEDRONIC ACID
     Indication: OSTEOPOROSIS
     Dosage: 5 MG, Q12MO
     Route: 041
     Dates: start: 20180820
  5. VIMPAT [Concomitant]
     Active Substance: LACOSAMIDE
     Indication: PRODUCT USED FOR UNKNOWN INDICATION
     Route: 048
  6. THYRADIN-S [Concomitant]
     Active Substance: LEVOTHYROXINE
     Indication: OSTEOPOROSIS
     Dosage: 30 UG, QD
     Route: 048
  7. CINAL [Concomitant]
     Active Substance: ASCORBIC ACID\CALCIUM PANTOTHENATE
     Indication: EPILEPSY
     Route: 048
  8. PHENOBAL [Concomitant]
     Active Substance: PHENOBARBITAL
     Indication: PRODUCT USED FOR UNKNOWN INDICATION
     Route: 048
  9. MIYA-BM [Concomitant]
     Active Substance: CLOSTRIDIUM BUTYRICUM SPORES STRAIN M-55
     Indication: PRODUCT USED FOR UNKNOWN INDICATION
     Route: 048
  10. TOCOPHEROL ACETATE [Concomitant]
     Active Substance: .ALPHA.-TOCOPHEROL ACETATE
     Indication: DIARRHOEA
     Route: 048
  11. FURSULTIAMINE [Concomitant]
     Active Substance: FURSULTIAMINE
     Indication: PRODUCT USED FOR UNKNOWN INDICATION
     Route: 048

REACTIONS (4)
  - Pneumonia [Recovered/Resolved]
  - Gastric pH decreased [Recovered/Resolved]
  - Pyrexia [Recovered/Resolved]
  - C-reactive protein increased [Recovered/Resolved]

NARRATIVE: CASE EVENT DATE: 20180820
